FAERS Safety Report 6252708-3 (Version None)
Quarter: 2009Q3

REPORT INFORMATION
  Report Type: 
  Country: None (occurrence: None)
  Receive Date: 20090701
  Receipt Date: 20090623
  Transmission Date: 20100115
  Serious: Yes (Other)
  Sender: FDA-Public Use
  Company Number: US-ELI_LILLY_AND_COMPANY-US200906005339

PATIENT
  Age: 62 Year
  Sex: Female

DRUGS (3)
  1. ALIMTA [Suspect]
     Indication: NON-SMALL CELL LUNG CANCER
     Dosage: 1050 MG, UNK
     Dates: start: 20090622
  2. DECADRON [Concomitant]
     Indication: PREMEDICATION
  3. ZOFRAN [Concomitant]
     Indication: PREMEDICATION

REACTIONS (6)
  - ANAPHYLACTOID REACTION [None]
  - HYPERHIDROSIS [None]
  - PHARYNGEAL OEDEMA [None]
  - PRURITUS [None]
  - RASH [None]
  - SWOLLEN TONGUE [None]
